FAERS Safety Report 5002112-0 (Version None)
Quarter: 2006Q2

REPORT INFORMATION
  Report Type: 
  Country: None (occurrence: None)
  Receive Date: 20060515
  Receipt Date: 20060203
  Transmission Date: 20061013
  Serious: Yes (Disabling, Other)
  Sender: FDA-Public Use
  Company Number: 2006UW01958

PATIENT
  Age: 70 Year
  Sex: Male

DRUGS (9)
  1. CRESTOR [Suspect]
     Indication: BLOOD CHOLESTEROL
     Route: 048
     Dates: end: 20050511
  2. CRESTOR [Suspect]
     Route: 048
     Dates: start: 20050611, end: 20051201
  3. ASPIRIN [Concomitant]
     Route: 048
  4. COVERSYL [Concomitant]
     Route: 048
  5. PLAVIX [Concomitant]
     Route: 048
  6. METFORMIN [Concomitant]
     Route: 048
  7. METOCLOPRAMIDE [Concomitant]
     Dosage: 10 MG TID PRN
     Route: 048
  8. PARIET [Concomitant]
     Route: 048
  9. NORVASC [Concomitant]
     Route: 048

REACTIONS (7)
  - DIFFICULTY IN WALKING [None]
  - HYPOAESTHESIA [None]
  - MUSCLE ATROPHY [None]
  - MUSCULAR WEAKNESS [None]
  - NEURALGIA [None]
  - SCIATICA [None]
  - WEIGHT DECREASED [None]
